FAERS Safety Report 16862702 (Version 1)
Quarter: 2019Q3

REPORT INFORMATION
  Report Type: Report from Study
  Country: None (occurrence: AR)
  Receive Date: 20190927
  Receipt Date: 20190927
  Transmission Date: 20191005
  Serious: Yes (Other)
  Sender: FDA-Public Use
  Company Number: AR-ABBVIE-19K-007-2942157-00

PATIENT
  Sex: Male

DRUGS (1)
  1. HUMIRA [Suspect]
     Active Substance: ADALIMUMAB
     Indication: PSORIASIS
     Route: 058
     Dates: start: 20160308

REACTIONS (3)
  - Rash macular [Recovering/Resolving]
  - Neoplasm [Not Recovered/Not Resolved]
  - Benign neoplasm of prostate [Recovering/Resolving]

NARRATIVE: CASE EVENT DATE: 2017
